FAERS Safety Report 7916468-X (Version None)
Quarter: 2011Q4

REPORT INFORMATION
  Report Type: 
  Country: None (occurrence: None)
  Receive Date: 20111114
  Receipt Date: 20111027
  Transmission Date: 20120403
  Serious: Yes (Hospitalization)
  Sender: FDA-Public Use
  Company Number: SPI201100305

PATIENT
  Age: 54 Year
  Sex: Female

DRUGS (5)
  1. AMITIZA [Suspect]
     Indication: CONSTIPATION
     Dosage: 24 MCG, QD, ORAL ; 8 MCG, QD, AS NEEDED ; 8 MCG, TID, ORAL
     Route: 048
  2. LIPITOR [Concomitant]
  3. METFORMIN HYDROCHLORIDE [Concomitant]
  4. LISINOPRIL (LISINOPRIL DIHYDRATE) [Concomitant]
  5. SYNTHROID [Concomitant]

REACTIONS (1)
  - COLITIS ISCHAEMIC [None]
